FAERS Safety Report 18143759 (Version 2)
Quarter: 2020Q4

REPORT INFORMATION
  Report Type: Report from Study
  Country: US (occurrence: US)
  Receive Date: 20200813
  Receipt Date: 20201104
  Transmission Date: 20210113
  Serious: No
  Sender: FDA-Public Use
  Company Number: US-IPSEN BIOPHARMACEUTICALS, INC.-2019-07606

PATIENT
  Age: 5 Year
  Sex: Female
  Weight: 18.4 kg

DRUGS (5)
  1. MULTIVITAMIN [Concomitant]
     Active Substance: VITAMINS
     Indication: NUTRITIONAL SUPPLEMENTATION
     Dosage: 1 GUMMY
     Dates: start: 20140820
  2. ALBUTEROL. [Concomitant]
     Active Substance: ALBUTEROL
     Indication: ASTHMA
     Dosage: RESPIRATORY INHALER (2 PUFFS AS NEEDED)
     Route: 045
     Dates: start: 20170919, end: 20200127
  3. ALBUTEROL. [Concomitant]
     Active Substance: ALBUTEROL
     Dosage: RESPIRATORY INHALER (2 PUFFS AS NEEDED)
     Route: 045
     Dates: start: 20200127
  4. DYSPORT [Suspect]
     Active Substance: ABOBOTULINUMTOXINA
     Indication: MUSCLE SPASTICITY
     Dosage: 460 UNITS
     Route: 030
     Dates: start: 20190222
  5. MELATONIN [Concomitant]
     Active Substance: MELATONIN
     Indication: INSOMNIA
     Dates: start: 20171102

REACTIONS (6)
  - Respiratory tract infection [Recovered/Resolved]
  - Hand fracture [Recovered/Resolved]
  - Asthma [Recovered/Resolved]
  - Pharyngitis [Recovered/Resolved]
  - Otitis media acute [Recovered/Resolved]
  - Upper respiratory tract infection [Recovered/Resolved]

NARRATIVE: CASE EVENT DATE: 20190302
